FAERS Safety Report 21599867 (Version 1)
Quarter: 2022Q4

REPORT INFORMATION
  Report Type: Spontaneous
  Country: US (occurrence: US)
  Receive Date: 20221115
  Receipt Date: 20221115
  Transmission Date: 20230112
  Serious: No
  Sender: FDA-Public Use
  Company Number: US-VIIV HEALTHCARE LIMITED-US2022AMR166318

PATIENT
  Age: 58 Year
  Sex: Male

DRUGS (2)
  1. VOCABRIA [Suspect]
     Active Substance: CABOTEGRAVIR SODIUM
     Indication: Product used for unknown indication
     Dosage: 30 MG, QD
     Route: 048
     Dates: start: 20221101
  2. EDURANT [Suspect]
     Active Substance: RILPIVIRINE HYDROCHLORIDE
     Indication: Product used for unknown indication
     Dosage: 25 MG, QD
     Route: 048
     Dates: start: 20221101

REACTIONS (14)
  - Headache [Unknown]
  - Paraesthesia [Unknown]
  - Restlessness [Unknown]
  - Pain in extremity [Unknown]
  - Muscle spasms [Unknown]
  - Neck pain [Unknown]
  - Dyspnoea [Unknown]
  - Tonsillar hypertrophy [Unknown]
  - Vision blurred [Unknown]
  - Body temperature increased [Unknown]
  - Hyperhidrosis [Unknown]
  - Sputum discoloured [Unknown]
  - Pollakiuria [Unknown]
  - Therapy cessation [Unknown]

NARRATIVE: CASE EVENT DATE: 20221101
